FAERS Safety Report 7260181-1 (Version None)
Quarter: 2011Q1

REPORT INFORMATION
  Report Type: 
  Country: None (occurrence: None)
  Receive Date: 20110130
  Receipt Date: 20101019
  Transmission Date: 20110831
  Serious: No
  Sender: FDA-Public Use
  Company Number: US-ABBOTT-10P-163-0679319-00

PATIENT
  Sex: Male
  Weight: 77.18 kg

DRUGS (18)
  1. UNKNOWN MEDICATION [Concomitant]
  2. UNKNOWN MEDICATION [Concomitant]
  3. UNKNOWN MEDICATION [Concomitant]
  4. UNKNOWN MEDICATION [Concomitant]
  5. HUMIRA [Suspect]
     Indication: RHEUMATOID ARTHRITIS
     Route: 058
     Dates: start: 20100301, end: 20100901
  6. UNKNOWN MEDICATION [Concomitant]
  7. UNKNOWN MEDICATION [Concomitant]
  8. UNKNOWN MEDICATION [Concomitant]
     Indication: PRODUCT USED FOR UNKNOWN INDICATION
  9. UNKNOWN MEDICATION [Concomitant]
  10. UNKNOWN MEDICATION [Concomitant]
  11. UNKNOWN MEDICATION [Concomitant]
  12. UNKNOWN MEDICATION [Concomitant]
  13. UNKNOWN MEDICATION [Concomitant]
  14. UNKNOWN MEDICATION [Concomitant]
  15. UNKNOWN MEDICATION [Concomitant]
  16. UNKNOWN MEDICATION [Concomitant]
  17. UNKNOWN MEDICATION [Concomitant]
  18. UNKNOWN MEDICATION [Concomitant]

REACTIONS (6)
  - DEPRESSION [None]
  - OEDEMA PERIPHERAL [None]
  - UPPER RESPIRATORY TRACT INFECTION [None]
  - ARTHRALGIA [None]
  - INFECTION [None]
  - ORAL FUNGAL INFECTION [None]
